FAERS Safety Report 20897059 (Version 1)
Quarter: 2022Q2

REPORT INFORMATION
  Report Type: Spontaneous
  Country: None (occurrence: CA)
  Receive Date: 20220531
  Receipt Date: 20220531
  Transmission Date: 20220721
  Serious: Yes (Other)
  Sender: FDA-Public Use
  Company Number: CA-B.Braun Medical Inc.-2129356

PATIENT
  Sex: Male

DRUGS (17)
  1. DEXTROSE MONOHYDRATE\THEOPHYLLINE\THEOPHYLLINE ANHYDROUS [Suspect]
     Active Substance: DEXTROSE MONOHYDRATE\THEOPHYLLINE\THEOPHYLLINE ANHYDROUS
  2. ALLOPURINOL [Suspect]
     Active Substance: ALLOPURINOL
  3. ARNUITY ELLIPTA [Suspect]
     Active Substance: FLUTICASONE FUROATE
  4. ATROVENT [Suspect]
     Active Substance: IPRATROPIUM BROMIDE
  5. BUDESONIDE\FORMOTEROL FUMARATE [Suspect]
     Active Substance: BUDESONIDE\FORMOTEROL FUMARATE
  6. COMBIVENT [Suspect]
     Active Substance: ALBUTEROL SULFATE\IPRATROPIUM BROMIDE
  7. MEPOLIZUMAB [Suspect]
     Active Substance: MEPOLIZUMAB
  8. MONTELUKAST SODIUM [Suspect]
     Active Substance: MONTELUKAST SODIUM
  9. NUCALA [Suspect]
     Active Substance: MEPOLIZUMAB
  10. OMNARIS [Suspect]
     Active Substance: CICLESONIDE
  11. PREDNISONE [Suspect]
     Active Substance: PREDNISONE
  12. RABEPRAZOLE SODIUM [Suspect]
     Active Substance: RABEPRAZOLE SODIUM
  13. RANITIDINE HYDROCHLORIDE [Suspect]
     Active Substance: RANITIDINE HYDROCHLORIDE
  14. SINGULAIR [Suspect]
     Active Substance: MONTELUKAST SODIUM
  15. SYMBICORT [Suspect]
     Active Substance: BUDESONIDE\FORMOTEROL FUMARATE DIHYDRATE
  16. UMECLIDINIUM BROMIDE [Suspect]
     Active Substance: UMECLIDINIUM BROMIDE
  17. VENTOLIN [Suspect]
     Active Substance: ALBUTEROL SULFATE

REACTIONS (11)
  - Adverse drug reaction [Unknown]
  - Asthma [Unknown]
  - Dermatitis allergic [Unknown]
  - Eczema [Unknown]
  - Eye pruritus [Unknown]
  - Glaucoma [Unknown]
  - Ocular discomfort [Unknown]
  - Ocular hyperaemia [Unknown]
  - Seasonal allergy [Unknown]
  - Therapeutic product effect incomplete [Unknown]
  - Wheezing [Unknown]
